FAERS Safety Report 10463809 (Version 1)
Quarter: 2014Q3

REPORT INFORMATION
  Report Type: Spontaneous
  Country: DE (occurrence: DE)
  Receive Date: 20140919
  Receipt Date: 20140919
  Transmission Date: 20150326
  Serious: Yes (Other)
  Sender: FDA-Public Use
  Company Number: DE-DRREDDYS-GER/GER/14/0043002

PATIENT
  Age: 38 Year
  Sex: Female
  Weight: 46 kg

DRUGS (6)
  1. AMITRIPTYLIN-NEURAXPHARM 100 [Suspect]
     Active Substance: AMITRIPTYLINE
     Indication: DEPRESSION
     Route: 048
  2. DOXEPIN [Suspect]
     Active Substance: DOXEPIN
     Indication: ANXIETY DISORDER
     Route: 048
     Dates: end: 201308
  3. ZELDOX [Suspect]
     Active Substance: ZIPRASIDONE
     Indication: SCHIZOPHRENIA
     Route: 048
     Dates: start: 20130127, end: 20130921
  4. VENLAFAXINE [Suspect]
     Active Substance: VENLAFAXINE HYDROCHLORIDE
     Indication: EATING DISORDER
     Route: 048
     Dates: start: 20130127, end: 20130921
  5. VENLAFAXIN DURA 75 RET [Suspect]
     Active Substance: VENLAFAXINE HYDROCHLORIDE
     Indication: EATING DISORDER
     Route: 048
     Dates: start: 20130127, end: 20130921
  6. AMITRIPTYLIN DURA 75 RET. [Suspect]
     Active Substance: AMITRIPTYLINE
     Indication: DEPRESSION
     Route: 048
     Dates: start: 20130127, end: 20130921

REACTIONS (5)
  - Cervical incompetence [Unknown]
  - Meconium in amniotic fluid [Unknown]
  - Exposure during pregnancy [Unknown]
  - Premature labour [Unknown]
  - Foetal monitoring abnormal [Unknown]
